FAERS Safety Report 7881732-X (Version None)
Quarter: 2011Q4

REPORT INFORMATION
  Report Type: 
  Country: None (occurrence: None)
  Receive Date: 20111101
  Receipt Date: 20110526
  Transmission Date: 20120403
  Serious: No
  Sender: FDA-Public Use
  Company Number: US-AMGEN-USASP2011027519

PATIENT
  Age: 60 Year
  Sex: Female

DRUGS (2)
  1. ENBREL [Suspect]
     Indication: RHEUMATOID ARTHRITIS
     Dosage: 50 MG, QWK
     Dates: start: 20100402
  2. VALTURNA [Concomitant]

REACTIONS (4)
  - FALL [None]
  - HYPOTENSION [None]
  - OEDEMA PERIPHERAL [None]
  - DIZZINESS [None]
